FAERS Safety Report 8881146 (Version 3)
Quarter: 2012Q4

REPORT INFORMATION
  Report Type: 
  Country: US (occurrence: US)
  Receive Date: 20121031
  Receipt Date: 20121219
  Transmission Date: 20130627
  Serious: Yes (Hospitalization, Other)
  Sender: FDA-Public Use
  Company Number: US-BAYER-2012-113696

PATIENT
  Age: 52 Year
  Sex: Male
  Weight: 95 kg

DRUGS (26)
  1. TRASYLOL [Suspect]
     Indication: AORTIC VALVE REPLACEMENT
     Dosage: Test dose: 1mL, 200mL pump prime
     Route: 042
     Dates: start: 20050425, end: 20050425
  2. TRASYLOL [Suspect]
     Indication: VASCULAR BYPASS GRAFT
     Dosage: Loading dose: 200mL load followed by 50mL continuous infusion
     Dates: start: 20050425, end: 20050425
  3. LIPITOR [Concomitant]
     Dosage: 10 mg, HS
     Route: 048
     Dates: start: 20050421, end: 20050421
  4. LOPRESSOR [Concomitant]
     Dosage: 50 mg, QD
     Dates: start: 20050421, end: 20050421
  5. FOLATE SODIUM [Concomitant]
     Dosage: UNK
     Route: 048
     Dates: start: 20050421, end: 20050421
  6. MULTIVITAMIN [Concomitant]
     Dosage: UNK
     Route: 048
     Dates: start: 20050421, end: 20050421
  7. ANUSOL [ZINC SULFATE] [Concomitant]
     Dosage: UNK
     Dates: start: 20050421, end: 20050421
  8. FORANE [Concomitant]
     Dosage: UNK
     Dates: start: 20050425, end: 20050425
  9. ROCURONIUM [Concomitant]
     Dosage: UNK
     Dates: start: 20050425, end: 20050425
  10. NIMBEX [Concomitant]
     Dosage: UNK
     Dates: start: 20050425, end: 20050425
  11. EPINEPHRINE [Concomitant]
     Dosage: UNK
     Dates: start: 20050425, end: 20050425
  12. BENADRYL [Concomitant]
     Dosage: UNK
     Dates: start: 20050425, end: 20050425
  13. VERSED [Concomitant]
     Dosage: UNK
     Dates: start: 20050425, end: 20050425
  14. FENTANYL [Concomitant]
     Dosage: UNK
     Dates: start: 20050425, end: 20050425
  15. PROTAMINE [Concomitant]
     Dosage: UNK
     Dates: start: 20050425, end: 20050425
  16. LASIX [Concomitant]
     Dosage: UNK
     Dates: start: 20050425, end: 20050425
  17. HEPARIN [Concomitant]
     Dosage: UNK
     Dates: start: 20050425, end: 20050425
  18. SODIUM BICARBONATE [Concomitant]
  19. MANNITOL [Concomitant]
     Dosage: UNK
     Dates: start: 20050425, end: 20050425
  20. NEOSYNEPHRINE [Concomitant]
     Dosage: UNK
     Dates: start: 20050425, end: 20050425
  21. LIDOCAINE [Concomitant]
     Dosage: UNK
     Dates: start: 20050425, end: 20050425
  22. POTASSIUM [Concomitant]
  23. CHROMAGEN [ASCORBIC ACID,CYANOCOBALAMIN,FERROUS FUMARATE,FOLIC ACI [Concomitant]
  24. EPOGEN [Concomitant]
  25. CARDIZEM [Concomitant]
  26. CORDARONE [Concomitant]

REACTIONS (4)
  - Multi-organ failure [None]
  - Renal failure acute [None]
  - Renal tubular necrosis [None]
  - Off label use [None]
